FAERS Safety Report 5292539-4 (Version None)
Quarter: 2007Q2

REPORT INFORMATION
  Report Type: 
  Country: None (occurrence: None)
  Receive Date: 20070403
  Receipt Date: 20070328
  Transmission Date: 20071010
  Serious: Yes (Other)
  Sender: FDA-Public Use
  Company Number: 237530

PATIENT
  Age: 12 Year
  Sex: Male
  Weight: 28.1 kg

DRUGS (17)
  1. XOLAIR [Suspect]
     Indication: ASTHMA
     Dosage: 300 MG, Q2W, SUBCUTANEOUS
     Route: 058
     Dates: start: 20061201
  2. PULMOZYME [Suspect]
     Indication: DRUG USE FOR UNKNOWN INDICATION
  3. CLARINEX [Concomitant]
  4. ASTELIN [Concomitant]
  5. TOBRAMYCIN [Concomitant]
  6. ADVAIR DISKUS 100/50 [Concomitant]
  7. AVELOX [Concomitant]
  8. PHYTONADIONE [Concomitant]
  9. BIAXIN [Concomitant]
  10. ZINC (ZINC NOS) [Concomitant]
  11. PREVACID [Concomitant]
  12. K-PHOS (POTASSIUM PHOSPHATE NOS) [Concomitant]
  13. MEROPENEM (MEROPENEM) [Concomitant]
  14. OS-CAL +D (CALCIUM NOS, CHOLECALCIFEROL) [Concomitant]
  15. IVIG (GLOBULIN, IMMUNE) [Concomitant]
  16. ALBUTEROL (ALBUTEROL/ALBUTEROL SULFATE) [Concomitant]
  17. SALINE SOLUTION (SODIUM CHLORIDE) [Concomitant]

REACTIONS (1)
  - VOMITING [None]
